FAERS Safety Report 23856206 (Version 1)
Quarter: 2024Q2

REPORT INFORMATION
  Report Type: Spontaneous
  Country: US (occurrence: US)
  Receive Date: 20240515
  Receipt Date: 20240515
  Transmission Date: 20240716
  Serious: No
  Sender: FDA-Public Use
  Company Number: US-TARSUS PHARMACEUTICALS-TSP-US-2024-000068

PATIENT
  Sex: Female

DRUGS (2)
  1. XDEMVY [Suspect]
     Active Substance: LOTILANER
     Indication: Dry eye
     Dosage: UNK
     Route: 047
  2. XDEMVY [Suspect]
     Active Substance: LOTILANER
     Indication: Eyelid margin crusting

REACTIONS (2)
  - Product prescribing issue [Unknown]
  - Product outer packaging issue [Unknown]
